FAERS Safety Report 13998177 (Version 10)
Quarter: 2018Q4

REPORT INFORMATION
  Report Type: Spontaneous
  Country: PT (occurrence: PT)
  Receive Date: 20170921
  Receipt Date: 20181224
  Transmission Date: 20190204
  Serious: Yes (Other)
  Sender: FDA-Public Use
  Company Number: PT-PFIZER INC-2017402174

PATIENT
  Age: 68 Year
  Sex: Male

DRUGS (9)
  1. AMLODIPINE [Suspect]
     Active Substance: AMLODIPINE BESYLATE
     Indication: HYPERTENSION
     Dosage: 5 MG, DAILY
  2. CLONIXIN [Interacting]
     Active Substance: CLONIXIN
     Indication: GOUT
     Dosage: 300 MG, UNK
  3. INDAPAMIDE. [Interacting]
     Active Substance: INDAPAMIDE
     Dosage: 2.5 MG
  4. METFORMIN HCL [Interacting]
     Active Substance: METFORMIN HYDROCHLORIDE
     Indication: TYPE 2 DIABETES MELLITUS
     Dosage: 3000 MG, DAILY
  5. DIAZEPAM. [Interacting]
     Active Substance: DIAZEPAM
     Dosage: 5 MG, DAILY
  6. ASPIRIN. [Interacting]
     Active Substance: ASPIRIN
     Dosage: 150 MG, DAILY
  7. GLICLAZIDE [Interacting]
     Active Substance: GLICLAZIDE
     Indication: TYPE 2 DIABETES MELLITUS
     Dosage: 30 MG, 2X/DAY
  8. ENALAPRIL W/HYDROCHLOROTHIAZIDE [Interacting]
     Active Substance: ENALAPRIL\HYDROCHLOROTHIAZIDE
     Indication: HYPERTENSION
     Dosage: UNK, ENALAPRIL 20MG + HYDROCHLOROTHIAZIDE 12,5 MG/DAY
  9. COLCHICINE. [Interacting]
     Active Substance: COLCHICINE
     Indication: GOUT
     Dosage: 4 DF, UNK

REACTIONS (4)
  - Haematotoxicity [Not Recovered/Not Resolved]
  - Hepatotoxicity [Recovered/Resolved]
  - Drug interaction [Recovered/Resolved]
  - Myopathy toxic [Recovered/Resolved]
